APPROVED DRUG PRODUCT: BENZTROPINE MESYLATE
Active Ingredient: BENZTROPINE MESYLATE
Strength: 0.5MG
Dosage Form/Route: TABLET;ORAL
Application: A081265 | Product #003 | TE Code: AA
Applicant: CHARTWELL RX SCIENCES LLC
Approved: Nov 29, 2023 | RLD: No | RS: No | Type: RX